FAERS Safety Report 25507032 (Version 1)
Quarter: 2025Q3

REPORT INFORMATION
  Report Type: Spontaneous
  Country: US (occurrence: US)
  Receive Date: 20250702
  Receipt Date: 20250702
  Transmission Date: 20251021
  Serious: No
  Sender: ELI LILLY AND COMPANY
  Company Number: US-ELI_LILLY_AND_COMPANY-US202506019611

PATIENT
  Age: 55 Year
  Sex: Male

DRUGS (2)
  1. EMGALITY [Suspect]
     Active Substance: GALCANEZUMAB-GNLM
     Indication: Product used for unknown indication
     Route: 058
     Dates: start: 20250528
  2. VITAMINS NOS [Concomitant]
     Active Substance: VITAMINS
     Indication: Product used for unknown indication
     Route: 065

REACTIONS (9)
  - Mobility decreased [Unknown]
  - Back pain [Unknown]
  - Myalgia [Unknown]
  - Pain in extremity [Unknown]
  - Arthralgia [Unknown]
  - Anxiety [Unknown]
  - Pain [Unknown]
  - Gluten sensitivity [Unknown]
  - Food intolerance [Unknown]

NARRATIVE: CASE EVENT DATE: 20250529
